FAERS Safety Report 13653227 (Version 1)
Quarter: 2017Q2

REPORT INFORMATION
  Report Type: Spontaneous
  Country: US (occurrence: US)
  Receive Date: 20170614
  Receipt Date: 20170614
  Transmission Date: 20170830
  Serious: No
  Sender: FDA-Public Use
  Company Number: US-ROCHE-1450050

PATIENT
  Sex: Male

DRUGS (1)
  1. XELODA [Suspect]
     Active Substance: CAPECITABINE
     Indication: PRODUCT USED FOR UNKNOWN INDICATION
     Dosage: EVERY AM: 2000 MG?EVERY PM: 2500 MG?(4 AM AND 5 PM FOR 14 DAYS/ 7 DAYS ON, 7 OFF)
     Route: 048
     Dates: start: 20140725

REACTIONS (4)
  - Ageusia [Unknown]
  - Lip pain [Unknown]
  - Oropharyngeal pain [Unknown]
  - Stomatitis [Unknown]
